FAERS Safety Report 10173684 (Version 1)
Quarter: 2014Q2

REPORT INFORMATION
  Report Type: Spontaneous
  Country: US (occurrence: None)
  Receive Date: 20140514
  Receipt Date: 20140514
  Transmission Date: 20141212
  Serious: No
  Sender: FDA-Public Use
  Company Number: None

PATIENT
  Age: 40 Year
  Sex: Female

DRUGS (1)
  1. TARGRETIN [Suspect]
     Indication: PRODUCT USED FOR UNKNOWN INDICATION
     Dosage: TARGRETIN 75MG, DAILY, PO?
     Route: 048
     Dates: start: 20140421

REACTIONS (2)
  - Pregnancy [None]
  - Exposure during pregnancy [None]
